FAERS Safety Report 5221104-X (Version None)
Quarter: 2007Q1

REPORT INFORMATION
  Report Type: 
  Country: None (occurrence: None)
  Receive Date: 20070126
  Receipt Date: 20070122
  Transmission Date: 20070707
  Serious: Yes (Hospitalization)
  Sender: FDA-Public Use
  Company Number: JP-BRISTOL-MYERS SQUIBB COMPANY-13626171

PATIENT
  Age: 43 Year
  Sex: Female

DRUGS (9)
  1. TAXOL [Suspect]
     Indication: BREAST CANCER
     Route: 041
     Dates: start: 20050131, end: 20050214
  2. PRIMPERAN [Concomitant]
     Route: 041
     Dates: start: 20050131, end: 20050214
  3. GASTER [Concomitant]
     Route: 041
     Dates: start: 20050131, end: 20050214
  4. KYTRIL [Concomitant]
     Route: 041
     Dates: start: 20050131, end: 20050214
  5. DECADRON [Concomitant]
     Route: 041
     Dates: start: 20050131, end: 20050214
  6. VENA [Concomitant]
     Route: 048
     Dates: start: 20050131, end: 20050215
  7. BETAMETHASONE SODIUM PHOSPHATE [Concomitant]
     Route: 041
     Dates: start: 20050201, end: 20050215
  8. HUMULIN 70/30 [Concomitant]
     Route: 041
     Dates: start: 20050201, end: 20050201
  9. BASEN [Concomitant]
     Route: 048
     Dates: start: 20050202, end: 20050227

REACTIONS (2)
  - DIARRHOEA [None]
  - MELAENA [None]
